FAERS Safety Report 13636460 (Version 1)
Quarter: 2017Q2

REPORT INFORMATION
  Report Type: Spontaneous
  Country: TR (occurrence: TR)
  Receive Date: 20170609
  Receipt Date: 20170609
  Transmission Date: 20170830
  Serious: Yes (Death, Other)
  Sender: FDA-Public Use
  Company Number: TR-CELGENEUS-TUR-20170510549

PATIENT

DRUGS (1)
  1. POMALIDOMIDE [Suspect]
     Active Substance: POMALIDOMIDE
     Indication: PRODUCT USED FOR UNKNOWN INDICATION
     Route: 048

REACTIONS (7)
  - Neutropenia [Unknown]
  - Thrombocytopenia [Unknown]
  - Vomiting [Unknown]
  - Disease progression [Unknown]
  - Renal failure [Unknown]
  - Nausea [Unknown]
  - Death [Fatal]
